FAERS Safety Report 4797327-0 (Version None)
Quarter: 2005Q4

REPORT INFORMATION
  Report Type: 
  Country: None (occurrence: None)
  Receive Date: 20051011
  Receipt Date: 20051011
  Transmission Date: 20060501
  Serious: Yes (Death)
  Sender: FDA-Public Use
  Company Number: None

PATIENT
  Sex: Male
  Weight: 97.977 kg

DRUGS (13)
  1. REVLIMID [Suspect]
     Indication: MULTIPLE MYELOMA
     Dosage: 25MG, PO, 1X/DAY
     Route: 048
     Dates: start: 20050713, end: 20051008
  2. DECADRON SRC [Suspect]
     Indication: MULTIPLE MYELOMA
     Dosage: 40 MG, PO, 1X/DAY
     Route: 048
     Dates: start: 20050713, end: 20051008
  3. BIAXIN [Suspect]
     Indication: MULTIPLE MYELOMA
     Dosage: 500MG PO BID
     Route: 048
     Dates: start: 20050713, end: 20051008
  4. PRILOSEC [Concomitant]
  5. BACTRIM [Concomitant]
  6. MYCLEX [Concomitant]
  7. ASPIRIN [Concomitant]
  8. FAMVIR [Concomitant]
  9. ARANESP [Concomitant]
  10. VALTREX [Concomitant]
  11. BLEPHAMIDE [Concomitant]
  12. CARDIZEM [Concomitant]
  13. VIROPTIC [Concomitant]

REACTIONS (2)
  - LOSS OF CONSCIOUSNESS [None]
  - PULSE ABSENT [None]
